FAERS Safety Report 8406725-5 (Version None)
Quarter: 2012Q2

REPORT INFORMATION
  Report Type: 
  Country: None (occurrence: None)
  Receive Date: 20120604
  Receipt Date: 20120530
  Transmission Date: 20120825
  Serious: Yes (Other)
  Sender: FDA-Public Use
  Company Number: PHFR2012IE000579

PATIENT
  Sex: Male

DRUGS (2)
  1. CLOZARIL [Suspect]
     Route: 048
     Dates: end: 20120312
  2. CLOZARIL [Suspect]
     Indication: SCHIZOPHRENIA
     Dosage: 87.5 MG, BID
     Route: 048
     Dates: start: 20111225, end: 20120223

REACTIONS (9)
  - NEUTROPENIA [None]
  - TONSILLITIS [None]
  - SEDATION [None]
  - HAEMOGLOBIN DECREASED [None]
  - SOMNOLENCE [None]
  - NEUTROPHIL COUNT INCREASED [None]
  - WHITE BLOOD CELL COUNT INCREASED [None]
  - RED BLOOD CELL COUNT DECREASED [None]
  - HAEMATOCRIT DECREASED [None]
